FAERS Safety Report 5797167-X (Version None)
Quarter: 2008Q2

REPORT INFORMATION
  Report Type: 
  Country: None (occurrence: None)
  Receive Date: 20080627
  Receipt Date: 20080616
  Transmission Date: 20081010
  Serious: Yes (Hospitalization)
  Sender: FDA-Public Use
  Company Number: HCDA20080002

PATIENT
  Age: 82 Year
  Sex: Female
  Weight: 90 kg

DRUGS (8)
  1. ACETAMINOPHEN AND HYDROCODONE BITARTRATE [Suspect]
     Dosage: 1 TABLET Q6H
  2. EXEMESTANE [Suspect]
     Indication: BREAST CANCER
     Dosage: 25 MG, DAILY, PER ORAL
     Route: 048
     Dates: start: 20071215, end: 20080413
  3. ALDOMET [Concomitant]
  4. ALEVE (CAPLET) [Concomitant]
  5. HYDRALAZINE HCL [Concomitant]
  6. TARKA (TRANDOLAPRIL/VERAPAMIL HCL) [Concomitant]
  7. COREG [Concomitant]
  8. HYDROCHLOROTHIAZIDE [Concomitant]

REACTIONS (4)
  - DEHYDRATION [None]
  - GASTROENTERITIS [None]
  - HAEMOGLOBIN DECREASED [None]
  - URINARY TRACT INFECTION [None]
